FAERS Safety Report 16255368 (Version 1)
Quarter: 2019Q2

REPORT INFORMATION
  Report Type: Spontaneous
  Country: US (occurrence: US)
  Receive Date: 20190429
  Receipt Date: 20190429
  Transmission Date: 20190711
  Serious: Yes (Hospitalization)
  Sender: FDA-Public Use
  Company Number: None

PATIENT
  Age: 72 Year
  Sex: Female
  Weight: 76.5 kg

DRUGS (10)
  1. BUPROPION. [Concomitant]
     Active Substance: BUPROPION
  2. HYDROCHLOROTHIAZIDE. [Concomitant]
     Active Substance: HYDROCHLOROTHIAZIDE
  3. PROAIR HFA [Concomitant]
     Active Substance: ALBUTEROL SULFATE
  4. IPRATOPIUM-ALBUTEROL [Concomitant]
  5. EXEMASTANE [Suspect]
     Active Substance: EXEMESTANE
     Indication: BREAST CANCER FEMALE
     Route: 048
     Dates: end: 20190423
  6. ZAFIRLUKAST. [Concomitant]
     Active Substance: ZAFIRLUKAST
  7. AFINITOR [Suspect]
     Active Substance: EVEROLIMUS
     Indication: BREAST CANCER FEMALE
     Route: 048
     Dates: start: 20190108, end: 20190423
  8. SIMVASTATIN. [Concomitant]
     Active Substance: SIMVASTATIN
  9. VITAMIN D NOS [Concomitant]
     Active Substance: VITAMIN D NOS
  10. FLUTICASONE. [Concomitant]
     Active Substance: FLUTICASONE

REACTIONS (5)
  - Dehydration [None]
  - Pneumonia [None]
  - Anaemia [None]
  - Blood potassium decreased [None]
  - White blood cell count decreased [None]

NARRATIVE: CASE EVENT DATE: 20190423
